FAERS Safety Report 9214439 (Version 5)
Quarter: 2013Q2

REPORT INFORMATION
  Report Type: Report from Study
  Country: FR (occurrence: FR)
  Receive Date: 20130405
  Receipt Date: 20130610
  Transmission Date: 20140414
  Serious: Yes (Hospitalization)
  Sender: FDA-Public Use
  Company Number: FR-ROCHE-1210683

PATIENT
  Age: 54 Year
  Sex: Male

DRUGS (3)
  1. VEMURAFENIB [Suspect]
     Indication: MALIGNANT MELANOMA
     Route: 048
     Dates: start: 20130128, end: 20130325
  2. NAPROXEN SODIUM [Concomitant]
     Route: 065
     Dates: start: 20130315, end: 20130325
  3. TRAMADOL HYDROCHLORIDE [Concomitant]
     Route: 065
     Dates: start: 20130315, end: 20130325

REACTIONS (1)
  - Hepatitis [Recovered/Resolved]
